FAERS Safety Report 12952044 (Version 2)
Quarter: 2018Q2

REPORT INFORMATION
  Report Type: Spontaneous
  Country: US (occurrence: US)
  Receive Date: 20161117
  Receipt Date: 20180515
  Transmission Date: 20180711
  Serious: No
  Sender: FDA-Public Use
  Company Number: US-SA-2016SA191236

PATIENT
  Sex: Female

DRUGS (2)
  1. TOUJEO [Suspect]
     Active Substance: INSULIN GLARGINE
     Indication: TYPE 1 DIABETES MELLITUS
     Dosage: DOSE:15 UNIT(S)
     Route: 065
     Dates: start: 20161006
  2. LANTUS [Concomitant]
     Active Substance: INSULIN GLARGINE
     Dosage: DOSE:45 UNIT(S)

REACTIONS (2)
  - Off label use [Unknown]
  - Blood glucose increased [Unknown]

NARRATIVE: CASE EVENT DATE: 201610
